FAERS Safety Report 9815768 (Version 1)
Quarter: 2014Q1

REPORT INFORMATION
  Report Type: Spontaneous
  Country: US (occurrence: US)
  Receive Date: 20140114
  Receipt Date: 20140114
  Transmission Date: 20141002
  Serious: No
  Sender: FDA-Public Use
  Company Number: US-B.I. PHARMACEUTICALS,INC./RIDGEFIELD-2014-BI-00546BP

PATIENT
  Age: 55 Year
  Sex: Female

DRUGS (8)
  1. PRADAXA [Suspect]
     Indication: SUPRAVENTRICULAR TACHYCARDIA
     Dosage: 300 MG
     Route: 048
     Dates: start: 20131209, end: 20131224
  2. MULTIPLE VITAMIN [Concomitant]
     Indication: SUPPLEMENTATION THERAPY
     Dosage: 1 ANZ
     Route: 048
  3. ENALAPRIL [Concomitant]
     Indication: HYPERTENSION
     Dosage: 10 MG
     Route: 048
     Dates: start: 201306
  4. HYDROCHLOROTHIAZIDE [Concomitant]
     Indication: HYPERTENSION
     Dosage: 25 MG
     Route: 048
     Dates: start: 201306
  5. METOPROLOL [Concomitant]
     Indication: HEART RATE
     Dosage: 200 MG
     Route: 048
     Dates: start: 201308
  6. METFORMIN [Concomitant]
     Indication: DIABETES MELLITUS
     Dosage: 1000 MG
     Route: 048
     Dates: start: 201306
  7. CALTRATE [Concomitant]
     Indication: SUPPLEMENTATION THERAPY
     Dosage: 600 MG
     Route: 048
  8. PENTOPRAZOLE [Concomitant]
     Indication: DYSPEPSIA
     Dosage: 40 MG
     Route: 048
     Dates: start: 2013

REACTIONS (3)
  - Atrial fibrillation [Recovered/Resolved]
  - Urticaria [Recovered/Resolved]
  - Off label use [Recovered/Resolved]
